FAERS Safety Report 4783505-3 (Version None)
Quarter: 2005Q3

REPORT INFORMATION
  Report Type: 
  Country: None (occurrence: None)
  Receive Date: 20050928
  Receipt Date: 20050928
  Transmission Date: 20060218
  Serious: Yes (Disabling, Other)
  Sender: FDA-Public Use
  Company Number: None

PATIENT
  Age: 54 Year
  Sex: Male
  Weight: 104.3273 kg

DRUGS (2)
  1. CIALIS [Suspect]
     Indication: SEXUAL DYSFUNCTION
     Dosage: 5-10 MG VARIED PO
     Route: 048
     Dates: start: 20040501, end: 20050527
  2. TOPROL-XL [Suspect]
     Indication: CARDIAC DISORDER
     Dosage: 50 MG ONE DAILY PO
     Route: 048
     Dates: start: 20040306, end: 20050723

REACTIONS (4)
  - BLINDNESS [None]
  - TUNNEL VISION [None]
  - VISION BLURRED [None]
  - VISUAL DISTURBANCE [None]
